FAERS Safety Report 8734130 (Version 2)
Quarter: 2012Q4

REPORT INFORMATION
  Report Type: 
  Country: US (occurrence: None)
  Receive Date: 20120802
  Receipt Date: 20120830
  Transmission Date: 20130627
  Serious: Yes (Other)
  Sender: FDA-Public Use
  Company Number: 2011001752

PATIENT
  Age: 83 Year
  Sex: Male

DRUGS (9)
  1. TARCEVA [Suspect]
     Indication: SMALL CELL LUNG CANCER STAGE UNSPECIFIED
     Dosage: 150 MG, UID/QD, ORAL
     Route: 048
     Dates: start: 20110323
  2. CARBOPLATIN (CARBOPLATIN) [Suspect]
  3. GEMZAR [Suspect]
  4. PRAVASTATIN (PRAVASTATIN) [Concomitant]
  5. STOOL SOFTENER (DOCUSATE SODIUM) [Concomitant]
  6. VERAPAMIL (VERAPAMIL) [Concomitant]
  7. CEPHALEXIN (CEPALEXIN) [Concomitant]
  8. LUMIGAN (BIMATOPROST) [Concomitant]
  9. OCUVITE ADULT 50+ /006822201/ (ASCORBIC ACID, CUPRIC OXIDE, OMEGA-3 FATTY ACIDS, TOCOPHEROL, XANTOFYL, ZINC OXIDE) CAPSULE [Concomitant]

REACTIONS (14)
  - Transfusion [None]
  - Tenderness [None]
  - Hypohidrosis [None]
  - Erythema [None]
  - Skin exfoliation [None]
  - Chills [None]
  - Decreased appetite [None]
  - Skin infection [None]
  - Rash pruritic [None]
  - Alopecia [None]
  - Rash maculo-papular [None]
  - Weight decreased [None]
  - Dry skin [None]
  - Anaemia [None]
